FAERS Safety Report 12471403 (Version 1)
Quarter: 2016Q2

REPORT INFORMATION
  Report Type: Spontaneous
  Country: JP (occurrence: JP)
  Receive Date: 20160616
  Receipt Date: 20160616
  Transmission Date: 20160815
  Serious: Yes (Hospitalization, Other)
  Sender: FDA-Public Use
  Company Number: JP-GLAXOSMITHKLINE-JP2016JPN084490

PATIENT
  Sex: Female

DRUGS (3)
  1. ADALAT [Concomitant]
     Active Substance: NIFEDIPINE
     Dosage: UNK
  2. LYRICA [Concomitant]
     Active Substance: PREGABALIN
     Dosage: UNK
     Dates: start: 20160608
  3. VALTREX [Suspect]
     Active Substance: VALACYCLOVIR HYDROCHLORIDE
     Indication: HERPES ZOSTER
     Dosage: 1000 MG, TID
     Route: 048
     Dates: start: 20160606

REACTIONS (4)
  - Dysarthria [Recovered/Resolved]
  - Acute kidney injury [Recovered/Resolved]
  - Logorrhoea [Recovered/Resolved]
  - Altered state of consciousness [Recovered/Resolved]

NARRATIVE: CASE EVENT DATE: 20160610
